FAERS Safety Report 24888813 (Version 1)
Quarter: 2025Q1

REPORT INFORMATION
  Report Type: Spontaneous
  Country: US (occurrence: None)
  Receive Date: 20250124
  Receipt Date: 20250124
  Transmission Date: 20250409
  Serious: Yes (Hospitalization)
  Sender: FDA-CTU
  Company Number: None

PATIENT
  Sex: Male

DRUGS (11)
  1. LENALIDOMIDE [Suspect]
     Active Substance: LENALIDOMIDE
     Indication: Plasma cell myeloma
     Route: 048
     Dates: start: 20240802
  2. ACETAMINOPHE [Concomitant]
  3. ACYCLOVIR [Concomitant]
     Active Substance: ACYCLOVIR
  4. ALBUTEROL [Concomitant]
     Active Substance: ALBUTEROL
  5. BENZONATATE [Concomitant]
     Active Substance: BENZONATATE
  6. CALCIUM GARB CHW [Concomitant]
  7. CIALIS [Concomitant]
     Active Substance: TADALAFIL
  8. DARZALEX [Concomitant]
     Active Substance: DARATUMUMAB
  9. DEXAMETHASONE [Concomitant]
     Active Substance: DEXAMETHASONE
  10. ELIQUIS [Concomitant]
     Active Substance: APIXABAN
  11. ENSURE NUTRA LIQ SHAKE [Concomitant]

REACTIONS (1)
  - Intentional dose omission [None]
